FAERS Safety Report 4571863-4 (Version None)
Quarter: 2005Q1

REPORT INFORMATION
  Report Type: 
  Country: None (occurrence: None)
  Receive Date: 20050202
  Receipt Date: 20050123
  Transmission Date: 20050727
  Serious: Yes (Hospitalization, Other)
  Sender: FDA-Public Use
  Company Number: 2005-01-1746

PATIENT
  Age: 52 Year
  Sex: Female

DRUGS (4)
  1. PEG-INTRON [Suspect]
     Indication: HEPATITIS C
     Dosage: 120 MCG QWK SUBUCUTANEOUS
     Route: 058
     Dates: start: 20040601, end: 20050114
  2. REBETOL [Suspect]
     Indication: HEPATITIS C
     Dosage: 1000 MG QD ORAL
     Route: 048
     Dates: start: 20040601, end: 20050119
  3. ZOLOFT [Concomitant]
  4. ADVAIR(SALMETEROL/FLUTICASONE) [Concomitant]

REACTIONS (2)
  - ANGER [None]
  - APPENDICITIS [None]
